FAERS Safety Report 8876270 (Version 4)
Quarter: 2013Q2

REPORT INFORMATION
  Report Type: Spontaneous
  Country: US (occurrence: US)
  Receive Date: 20121023
  Receipt Date: 20130612
  Transmission Date: 20140414
  Serious: Yes (Hospitalization, Other)
  Sender: FDA-Public Use
  Company Number: US-009507513-1201USA00400

PATIENT
  Sex: Female

DRUGS (8)
  1. FOSAMAX [Suspect]
     Indication: OSTEOPOROSIS
     Dosage: UNK
     Route: 048
     Dates: end: 2010
  2. FOSAMAX [Suspect]
     Dosage: 70 MG, QW
     Route: 048
     Dates: end: 2010
  3. ALENDRONATE SODIUM [Suspect]
     Dosage: 70 MG, UNK
  4. PREDNISONE [Concomitant]
     Indication: RENAL TRANSPLANT
  5. CYCLOSPORINE [Concomitant]
     Indication: RENAL TRANSPLANT
  6. IMURAN (AZATHIOPRINE SODIUM) [Concomitant]
     Indication: RENAL TRANSPLANT
  7. PRAVACHOL [Concomitant]
     Indication: BLOOD CHOLESTEROL
  8. VITAMINS (UNSPECIFIED) [Concomitant]

REACTIONS (87)
  - Limb injury [Unknown]
  - Lymphoma [Unknown]
  - Intramedullary rod insertion [Unknown]
  - Intramedullary rod insertion [Unknown]
  - Hypovolaemic shock [Recovered/Resolved]
  - Renal failure [Unknown]
  - Anaemia [Unknown]
  - Hypertension [Unknown]
  - Type 1 diabetes mellitus [Unknown]
  - Electrocardiogram T wave abnormal [Unknown]
  - Hip fracture [Unknown]
  - Cholecystectomy [Unknown]
  - Escherichia urinary tract infection [Recovered/Resolved]
  - Escherichia sepsis [Recovered/Resolved]
  - Haematuria [Unknown]
  - Hypoproteinaemia [Unknown]
  - Renal failure [Unknown]
  - Pancytopenia [Unknown]
  - Renal failure [Unknown]
  - Splenomegaly [Unknown]
  - Pancytopenia [Unknown]
  - Liver function test abnormal [Unknown]
  - Femur fracture [Unknown]
  - Femur fracture [Unknown]
  - Vitamin D deficiency [Unknown]
  - Calcium deficiency [Unknown]
  - Type 1 diabetes mellitus [Unknown]
  - Ligament sprain [Unknown]
  - Arthritis [Unknown]
  - Ingrowing nail [Unknown]
  - Gout [Unknown]
  - Low turnover osteopathy [Unknown]
  - Sciatica [Unknown]
  - Bursitis [Unknown]
  - Dental examination abnormal [Unknown]
  - Tooth abscess [Recovering/Resolving]
  - Wrist fracture [Unknown]
  - Osteopenia [Unknown]
  - Oral infection [Unknown]
  - Lyme disease [Unknown]
  - Chronic allograft nephropathy [Not Recovered/Not Resolved]
  - Herpes zoster [Unknown]
  - Neuralgia [Unknown]
  - Low density lipoprotein increased [Unknown]
  - Haematochezia [Unknown]
  - Haemorrhoids [Unknown]
  - Anaemia of chronic disease [Not Recovered/Not Resolved]
  - Bone disorder [Unknown]
  - Overweight [Unknown]
  - Tendonitis [Unknown]
  - Rotator cuff syndrome [Unknown]
  - Bursa disorder [Unknown]
  - Osteoarthritis [Unknown]
  - Device failure [Unknown]
  - Parasite blood test positive [Unknown]
  - Lipohypertrophy [Unknown]
  - Ecchymosis [Unknown]
  - Arthritis [Unknown]
  - Central venous catheterisation [Unknown]
  - Neutropenia [Unknown]
  - Viral infection [Unknown]
  - Ecchymosis [Unknown]
  - Tachycardia [Unknown]
  - Iron deficiency [Unknown]
  - Nitrite urine present [Unknown]
  - Arthropod bite [Unknown]
  - Diastolic dysfunction [Unknown]
  - Mitral valve incompetence [Unknown]
  - Tricuspid valve incompetence [Unknown]
  - Myocardial ischaemia [Unknown]
  - Oedema [Unknown]
  - Glomerulonephritis acute [Unknown]
  - Rheumatoid arthritis [Unknown]
  - Herpes zoster [Unknown]
  - Herpes zoster [Unknown]
  - Pyuria [Unknown]
  - Wrist fracture [Unknown]
  - Limb injury [Unknown]
  - Osteoarthritis [Unknown]
  - Abdominal pain upper [Unknown]
  - Musculoskeletal pain [Unknown]
  - Local swelling [Recovered/Resolved]
  - Pruritus [Unknown]
  - Face oedema [Unknown]
  - Abdominal pain upper [Unknown]
  - Drug ineffective [Unknown]
  - Drug ineffective [Unknown]
